FAERS Safety Report 15292673 (Version 2)
Quarter: 2018Q3

REPORT INFORMATION
  Report Type: Spontaneous
  Country: US (occurrence: US)
  Receive Date: 20180819
  Receipt Date: 20180828
  Transmission Date: 20181010
  Serious: No
  Sender: FDA-Public Use
  Company Number: US-JNJFOC-20180718500

PATIENT
  Age: 34 Year
  Sex: Male
  Weight: 86.18 kg

DRUGS (2)
  1. MENS ROGAINE EXTRA STRENGTH [Suspect]
     Active Substance: MINOXIDIL
     Route: 061
  2. MENS ROGAINE EXTRA STRENGTH [Suspect]
     Active Substance: MINOXIDIL
     Indication: ALOPECIA
     Dosage: 1/2 CAPFUL
     Route: 061
     Dates: start: 20170920, end: 20180410

REACTIONS (3)
  - Alopecia [Not Recovered/Not Resolved]
  - Incorrect dose administered [Unknown]
  - Seborrhoea [Unknown]

NARRATIVE: CASE EVENT DATE: 20170920
